APPROVED DRUG PRODUCT: FENOFIBRATE (MICRONIZED)
Active Ingredient: FENOFIBRATE
Strength: 67MG
Dosage Form/Route: CAPSULE;ORAL
Application: A075868 | Product #001
Applicant: IMPAX LABORATORIES INC
Approved: Oct 27, 2003 | RLD: No | RS: No | Type: DISCN